FAERS Safety Report 21551494 (Version 1)
Quarter: 2022Q4

REPORT INFORMATION
  Report Type: Spontaneous
  Country: US (occurrence: US)
  Receive Date: 20221103
  Receipt Date: 20221103
  Transmission Date: 20230113
  Serious: No
  Sender: FDA-Public Use
  Company Number: US-INCYTE CORPORATION-2022IN010632

PATIENT

DRUGS (4)
  1. JAKAFI [Suspect]
     Active Substance: RUXOLITINIB
     Indication: Chronic graft versus host disease
     Dosage: 2.5 MILLIGRAM, BID
     Route: 065
  2. JAKAFI [Suspect]
     Active Substance: RUXOLITINIB
     Dosage: UNK, THE PATIENT WAS TAPERED OFF RUXOLITINIB BY DAY +534, RUXOLITINIB TAPER TO 0 MG COMPLETED, RUXOL
     Route: 065
  3. IBRUTINIB [Concomitant]
     Active Substance: IBRUTINIB
     Indication: Chronic graft versus host disease
     Dosage: 140 MILLIGRAM, QD
     Route: 065
  4. IBRUTINIB [Concomitant]
     Active Substance: IBRUTINIB
     Dosage: UNK, THE PATIENT WAS TAPERED OFF IBRUTINIB BY DAY +618
     Route: 065

REACTIONS (2)
  - Off label use [Unknown]
  - Drug effective for unapproved indication [Unknown]
